FAERS Safety Report 5723961 (Version 3)
Quarter: 2012Q4

REPORT INFORMATION
  Report Type: 
  Country: GB (occurrence: GB)
  Receive Date: 20050127
  Receipt Date: 20121112
  Transmission Date: 20130627
  Serious: Yes (Hospitalization)
  Sender: FDA-Public Use
  Company Number: GB-JNJFOC-20050104632

PATIENT
  Age: 47 Year
  Sex: Male

DRUGS (3)
  1. IBUPROFEN [Suspect]
     Route: 048
  2. IBUPROFEN [Suspect]
     Indication: HEADACHE
     Route: 048
     Dates: end: 20041219
  3. WARFARIN [Concomitant]
     Indication: DEEP VEIN THROMBOSIS
     Dosage: as per INR,oral
     Route: 048
     Dates: end: 200412

REACTIONS (4)
  - Melaena [Recovering/Resolving]
  - Dyspnoea [Recovering/Resolving]
  - Oesophagitis [Recovering/Resolving]
  - Chest pain [Recovering/Resolving]
